FAERS Safety Report 19925703 (Version 1)
Quarter: 2021Q4

REPORT INFORMATION
  Report Type: Spontaneous
  Country: FR (occurrence: FR)
  Receive Date: 20211007
  Receipt Date: 20211007
  Transmission Date: 20220303
  Serious: Yes (Hospitalization, Other)
  Sender: FDA-Public Use
  Company Number: FR-AFSSAPS-AVTO20212208

PATIENT
  Age: 29 Year
  Sex: Male

DRUGS (4)
  1. SILDENAFIL [Suspect]
     Active Substance: SILDENAFIL
     Indication: Product used for unknown indication
     Dosage: UNK(INCONNUE)
     Route: 065
     Dates: start: 20200907
  2. 3-HYDROXYBUTYRIC ACID, (+/-)- [Suspect]
     Active Substance: 3-HYDROXYBUTYRIC ACID, (+/-)-
     Indication: Product used for unknown indication
     Dosage: UNK(INCONNUE)
     Route: 065
     Dates: start: 20200906
  3. ALCOHOL [Suspect]
     Active Substance: ALCOHOL
     Indication: Product used for unknown indication
     Dosage: UNK(INCONNUE)
     Route: 065
     Dates: start: 20200907
  4. METHAMPHETAMINE [Suspect]
     Active Substance: METHAMPHETAMINE
     Indication: Product used for unknown indication
     Dosage: UNK(INCONNUE)
     Route: 065

REACTIONS (5)
  - Drug abuse [Recovering/Resolving]
  - Tension headache [Recovered/Resolved]
  - Chest pain [Recovered/Resolved]
  - Malaise [Recovering/Resolving]
  - Agitation [Recovered/Resolved]

NARRATIVE: CASE EVENT DATE: 20200906
